FAERS Safety Report 23309538 (Version 1)
Quarter: 2023Q4

REPORT INFORMATION
  Report Type: Spontaneous
  Country: GR (occurrence: GR)
  Receive Date: 20231218
  Receipt Date: 20231218
  Transmission Date: 20240109
  Serious: Yes (Hospitalization, Other)
  Sender: FDA-Public Use
  Company Number: GR-BAYER-2023A179491

PATIENT
  Age: 52 Year
  Sex: Female

DRUGS (1)
  1. CIPROFLOXACIN [Suspect]
     Active Substance: CIPROFLOXACIN

REACTIONS (8)
  - Liver abscess [None]
  - Abdominal pain upper [None]
  - Pyrexia [None]
  - Drug ineffective [None]
  - Headache [None]
  - Malaise [None]
  - Fatigue [None]
  - Haemophagocytic lymphohistiocytosis [None]
